FAERS Safety Report 17007743 (Version 1)
Quarter: 2019Q4

REPORT INFORMATION
  Report Type: Spontaneous
  Country: JP (occurrence: JP)
  Receive Date: 20191108
  Receipt Date: 20191108
  Transmission Date: 20200122
  Serious: Yes (Other)
  Sender: FDA-Public Use
  Company Number: JP-AMGEN-JPNSP2019183809

PATIENT
  Age: 71 Year
  Sex: Female

DRUGS (1)
  1. PRALIA [Suspect]
     Active Substance: DENOSUMAB
     Indication: PRODUCT USED FOR UNKNOWN INDICATION
     Dosage: 60 MILLIGRAM, ONCE
     Route: 065
     Dates: start: 201906

REACTIONS (3)
  - Renal impairment [Unknown]
  - Musculoskeletal pain [Recovered/Resolved]
  - Blood glucose increased [Unknown]
